FAERS Safety Report 8469411-1 (Version None)
Quarter: 2012Q2

REPORT INFORMATION
  Report Type: 
  Country: None (occurrence: None)
  Receive Date: 20120626
  Receipt Date: 20120614
  Transmission Date: 20120825
  Serious: Yes (Life-Threatening, Hospitalization)
  Sender: FDA-Public Use
  Company Number: GB-FRI-S06-UKI-04735-01

PATIENT
  Age: 43 Year
  Sex: Male

DRUGS (8)
  1. CITALOPRAM HYDROBROMIDE [Suspect]
     Route: 048
  2. AMLODIPINE [Suspect]
  3. FOLIC ACID [Suspect]
  4. PERINDOPRIL ERBUMINE [Suspect]
  5. ACETAMINOPHEN [Suspect]
  6. ALCOHOL [Suspect]
  7. ASPIRIN [Suspect]
  8. FLUOXETINE [Suspect]

REACTIONS (2)
  - HYPOTENSION [None]
  - MULTIPLE DRUG OVERDOSE [None]
